FAERS Safety Report 11082481 (Version 2)
Quarter: 2015Q2

REPORT INFORMATION
  Report Type: Spontaneous
  Country: IL (occurrence: IL)
  Receive Date: 20150501
  Receipt Date: 20150518
  Transmission Date: 20150821
  Serious: Yes (Life-Threatening, Hospitalization, Disabling)
  Sender: FDA-Public Use
  Company Number: PHHY2015IL052676

PATIENT
  Age: 35 Year
  Sex: Male

DRUGS (2)
  1. CIPRALEX [Concomitant]
     Active Substance: ESCITALOPRAM OXALATE
     Indication: PRODUCT USED FOR UNKNOWN INDICATION
     Route: 065
  2. RITALIN LA [Suspect]
     Active Substance: METHYLPHENIDATE HYDROCHLORIDE
     Indication: ATTENTION DEFICIT/HYPERACTIVITY DISORDER
     Dosage: 50 MG, QD
     Route: 065
     Dates: start: 201410

REACTIONS (2)
  - Coma [Unknown]
  - Cardiac arrest [Recovering/Resolving]

NARRATIVE: CASE EVENT DATE: 201504
